FAERS Safety Report 7783747-9 (Version None)
Quarter: 2011Q3

REPORT INFORMATION
  Report Type: 
  Country: None (occurrence: None)
  Receive Date: 20110928
  Receipt Date: 20110923
  Transmission Date: 20111222
  Serious: Yes (Life-Threatening, Other)
  Sender: FDA-Public Use
  Company Number: RU-ELI_LILLY_AND_COMPANY-RU201109007572

PATIENT
  Age: 55 Year
  Sex: Male

DRUGS (2)
  1. GLUCOPHAGE [Concomitant]
     Dosage: 1000 MG, BID
  2. BYETTA [Suspect]
     Indication: TYPE 2 DIABETES MELLITUS
     Dosage: 10 UG, UNKNOWN
     Dates: start: 20100901, end: 20110921

REACTIONS (1)
  - BLOOD CREATININE INCREASED [None]
